FAERS Safety Report 4973695-1 (Version None)
Quarter: 2006Q2

REPORT INFORMATION
  Report Type: 
  Country: None (occurrence: None)
  Receive Date: 20060414
  Receipt Date: 20051207
  Transmission Date: 20061013
  Serious: Yes (Other)
  Sender: FDA-Public Use
  Company Number: US-MERCK-0512USA01520

PATIENT
  Age: 75 Year
  Sex: Female
  Weight: 70 kg

DRUGS (20)
  1. VIOXX [Suspect]
     Indication: BACK PAIN
     Route: 048
     Dates: start: 20010403, end: 20040601
  2. VIOXX [Suspect]
     Route: 048
     Dates: start: 20040615, end: 20040930
  3. LEVOXYL [Concomitant]
     Route: 065
  4. ATIVAN [Concomitant]
     Route: 065
  5. ZOLOFT [Concomitant]
     Route: 065
  6. HYDROCORTISONE [Concomitant]
     Route: 065
  7. [THERAPY UNSPECIFIED] [Concomitant]
     Route: 065
  8. AUGMENTIN '125' [Concomitant]
     Route: 065
  9. FML S.O.P. [Concomitant]
     Route: 065
  10. TOBRADEX [Concomitant]
     Route: 065
  11. ZYRTEC [Concomitant]
     Route: 065
  12. BETA-VAL [Concomitant]
     Route: 065
  13. MECLIZINE [Concomitant]
     Route: 065
  14. CIPRO XR [Concomitant]
     Route: 065
  15. FOSAMAX [Concomitant]
     Route: 065
  16. ERYTHROMYCIN [Concomitant]
     Route: 065
  17. MUPIROCIN [Concomitant]
     Route: 065
  18. [THERAPY UNSPECIFIED] [Concomitant]
     Route: 065
  19. ULTRAVATE [Concomitant]
     Route: 065
  20. CLOBETASOL PROPIONATE [Concomitant]
     Route: 065

REACTIONS (8)
  - ADVERSE EVENT [None]
  - CEREBRAL INFARCTION [None]
  - DIZZINESS [None]
  - FALL [None]
  - HEADACHE [None]
  - NAUSEA [None]
  - PSORIASIS [None]
  - TRANSIENT ISCHAEMIC ATTACK [None]
